FAERS Safety Report 5447010-3 (Version None)
Quarter: 2007Q3

REPORT INFORMATION
  Report Type: 
  Country: None (occurrence: None)
  Receive Date: 20070810
  Receipt Date: 20060308
  Transmission Date: 20080115
  Serious: Yes (Hospitalization)
  Sender: FDA-Public Use
  Company Number: PHEH2006US02786

PATIENT
  Age: 82 Year
  Sex: Male

DRUGS (9)
  1. VISUDYNE [Suspect]
     Indication: MACULAR DEGENERATION
     Dosage: 10 MG DAILY IV
     Route: 042
     Dates: start: 20060228, end: 20060228
  2. FLUORESCITE [Concomitant]
  3. LOPRESSOR [Concomitant]
  4. ASPIRIN [Concomitant]
  5. ZESTRIL [Concomitant]
  6. PLAVIX [Concomitant]
  7. HYDROCHLOROTHIAZIDE [Concomitant]
  8. MEVACOR [Concomitant]
  9. VITAMINS [Concomitant]

REACTIONS (5)
  - BLOOD PRESSURE INCREASED [None]
  - DIZZINESS [None]
  - LOSS OF CONSCIOUSNESS [None]
  - NAUSEA [None]
  - SYNCOPE VASOVAGAL [None]
